FAERS Safety Report 23201890 (Version 1)
Quarter: 2023Q4

REPORT INFORMATION
  Report Type: Spontaneous
  Country: US (occurrence: US)
  Receive Date: 20231120
  Receipt Date: 20231120
  Transmission Date: 20240110
  Serious: Yes (Hospitalization)
  Sender: FDA-Public Use
  Company Number: US-002147023-NVSC2023US245441

PATIENT

DRUGS (1)
  1. CRIZANLIZUMAB [Suspect]
     Active Substance: CRIZANLIZUMAB
     Indication: Sickle cell disease
     Dosage: UNK, (LAST GIVEN 7 WEEKS PRIOR TO ADMISSION)
     Route: 065

REACTIONS (5)
  - Candida infection [Recovering/Resolving]
  - Klebsiella infection [Recovering/Resolving]
  - Lactobacillus infection [Recovering/Resolving]
  - Enterococcal infection [Recovering/Resolving]
  - Staphylococcal infection [Recovering/Resolving]
